APPROVED DRUG PRODUCT: ATROVENT
Active Ingredient: IPRATROPIUM BROMIDE
Strength: 0.021MG/SPRAY **Federal Register determination that product was not discontinued or withdrawn for safety or effectiveness reasons**
Dosage Form/Route: SPRAY, METERED;NASAL
Application: N020393 | Product #001
Applicant: BOEHRINGER INGELHEIM PHARMACEUTICALS INC
Approved: Oct 20, 1995 | RLD: Yes | RS: No | Type: DISCN